FAERS Safety Report 20311814 (Version 1)
Quarter: 2022Q1

REPORT INFORMATION
  Report Type: Other
  Country: None (occurrence: US)
  Receive Date: 20220108
  Receipt Date: 20220108
  Transmission Date: 20220424
  Serious: Yes (Death)
  Sender: FDA-Public Use
  Company Number: US-Intellipharmaceutics Corp.-2123745

PATIENT
  Age: 53 Year
  Sex: Male

DRUGS (11)
  1. QUETIAPINE FUMARATE [Suspect]
     Active Substance: QUETIAPINE FUMARATE
     Indication: Product used for unknown indication
     Route: 048
  2. METHYLPHENIDATE HYDROCHLORIDE [Suspect]
     Active Substance: METHYLPHENIDATE HYDROCHLORIDE
     Route: 048
  3. ACETAMINOPHEN [Suspect]
     Active Substance: ACETAMINOPHEN
     Route: 048
  4. LITHIUM [Suspect]
     Active Substance: LITHIUM
     Route: 048
  5. ALCOHOL [Suspect]
     Active Substance: ALCOHOL
     Route: 048
  6. HYDROCHLORIC ACID [Suspect]
     Active Substance: HYDROCHLORIC ACID
     Route: 048
  7. DOXYLAMINE SUCCINATE [Suspect]
     Active Substance: DOXYLAMINE SUCCINATE
     Route: 048
  8. IBUPROFEN [Suspect]
     Active Substance: IBUPROFEN
     Route: 048
  9. LAMOTRIGINE [Suspect]
     Active Substance: LAMOTRIGINE
     Route: 048
  10. ARIPIPRAZOLE [Suspect]
     Active Substance: ARIPIPRAZOLE
     Route: 048
  11. LEVOTHYROXINE [Suspect]
     Active Substance: LEVOTHYROXINE
     Route: 048

REACTIONS (1)
  - Completed suicide [Fatal]

NARRATIVE: CASE EVENT DATE: 20200101
